FAERS Safety Report 4677160-0 (Version None)
Quarter: 2005Q2

REPORT INFORMATION
  Report Type: 
  Country: None (occurrence: None)
  Receive Date: 20050526
  Receipt Date: 20050411
  Transmission Date: 20051028
  Serious: Yes (Other)
  Sender: FDA-Public Use
  Company Number: 2005064500

PATIENT
  Age: 50 Year
  Sex: Male

DRUGS (3)
  1. BEXTRA [Suspect]
     Indication: ARTHRALGIA
     Dosage: ORAL
     Route: 048
     Dates: start: 20050406, end: 20050408
  2. VOLTAREN [Concomitant]
  3. ALL OTHER THERAPEUTIC PRODUCTS (ALL OTHER THERAPEUTIC PRODUCTS) [Concomitant]

REACTIONS (6)
  - BLOOD PRESSURE INCREASED [None]
  - EPISTAXIS [None]
  - IRRITABILITY [None]
  - MOUTH HAEMORRHAGE [None]
  - RASH MACULAR [None]
  - URTICARIA [None]
